FAERS Safety Report 8032700-9 (Version None)
Quarter: 2012Q1

REPORT INFORMATION
  Report Type: 
  Country: None (occurrence: None)
  Receive Date: 20120110
  Receipt Date: 20120103
  Transmission Date: 20120608
  Serious: No
  Sender: FDA-Public Use
  Company Number: US-B.I. PHARMACEUTICALS,INC./RIDGEFIELD-2011-BP-20233BP

PATIENT
  Sex: Male

DRUGS (9)
  1. KLONOPIN [Concomitant]
     Indication: PARKINSON'S DISEASE
     Dates: start: 20110101
  2. JANUMET [Concomitant]
     Indication: TYPE 2 DIABETES MELLITUS
     Dates: start: 20090201
  3. AMBIEN [Concomitant]
     Indication: INSOMNIA
     Dates: start: 20100301
  4. AZOR [Concomitant]
     Indication: HYPERTENSION
     Dates: start: 20070101
  5. NAPROSYN [Concomitant]
     Indication: OSTEOARTHRITIS
     Dates: start: 20101101
  6. MIRAPEX [Suspect]
     Indication: PARKINSON'S DISEASE
     Dosage: 1.5 MG
     Route: 048
     Dates: start: 20101201
  7. ZOLOFT [Concomitant]
     Indication: DEPRESSION
     Dates: start: 20090601
  8. AMANTADINE HCL [Concomitant]
     Indication: PARKINSON'S DISEASE
     Dates: start: 20110201
  9. KLONOPIN [Concomitant]
     Indication: SLEEP TERROR

REACTIONS (2)
  - DYSKINESIA [None]
  - SLEEP TERROR [None]
